FAERS Safety Report 9276358 (Version 2)
Quarter: 2013Q2

REPORT INFORMATION
  Report Type: Spontaneous
  Country: US (occurrence: US)
  Receive Date: 20130507
  Receipt Date: 20130517
  Transmission Date: 20140414
  Serious: Yes (Life-Threatening, Hospitalization, Disabling, Other)
  Sender: FDA-Public Use
  Company Number: US-ELI_LILLY_AND_COMPANY-US201305001080

PATIENT
  Age: 67 Year
  Sex: Male
  Weight: 85.5 kg

DRUGS (5)
  1. EFFIENT [Suspect]
     Indication: STENT PLACEMENT
     Dosage: 60 MG, SINGLE
     Route: 048
     Dates: start: 20130205, end: 20130205
  2. EFFIENT [Suspect]
     Dosage: 10 MG, QD
     Route: 048
     Dates: start: 20130206, end: 20130207
  3. ASPIRIN [Concomitant]
     Indication: STENT PLACEMENT
     Dosage: 162 MG, SINGLE
     Route: 048
     Dates: start: 20130205, end: 20130205
  4. ASPIRIN [Concomitant]
     Dosage: 81 MG, QD
     Dates: start: 20130206, end: 20130207
  5. ASPIRIN [Concomitant]
     Dosage: 325 MG, QD
     Route: 048

REACTIONS (4)
  - Brain oedema [Recovered/Resolved with Sequelae]
  - Cerebral haemorrhage [Recovered/Resolved with Sequelae]
  - Visual field defect [Recovered/Resolved with Sequelae]
  - Aphasia [Recovering/Resolving]
